FAERS Safety Report 19254626 (Version 1)
Quarter: 2021Q2

REPORT INFORMATION
  Report Type: Report from Study
  Country: US (occurrence: US)
  Receive Date: 20210513
  Receipt Date: 20210513
  Transmission Date: 20210717
  Serious: Yes (Hospitalization)
  Sender: FDA-Public Use
  Company Number: US-MYLANLABS-2021M1027826

PATIENT
  Age: 27 Year

DRUGS (3)
  1. AMINOCAPROIC ACID. [Suspect]
     Active Substance: AMINOCAPROIC ACID
     Indication: CEREBRAL HAEMORRHAGE
     Dosage: 2 GRAM,2 TIMES
     Route: 040
  2. DESMOPRESSIN [Suspect]
     Active Substance: DESMOPRESSIN
     Indication: CEREBRAL HAEMORRHAGE
     Route: 065
  3. PROTAMINE [Suspect]
     Active Substance: PROTAMINE
     Indication: CEREBRAL HAEMORRHAGE
     Route: 065

REACTIONS (2)
  - Drug ineffective for unapproved indication [Unknown]
  - Off label use [Unknown]
